FAERS Safety Report 21781907 (Version 1)
Quarter: 2022Q4

REPORT INFORMATION
  Report Type: Report from Study
  Country: CA (occurrence: CA)
  Receive Date: 20221227
  Receipt Date: 20221227
  Transmission Date: 20230113
  Serious: Yes (Death, Other)
  Sender: FDA-Public Use
  Company Number: None

PATIENT
  Age: 73 Year
  Sex: Male

DRUGS (7)
  1. MONTELUKAST [Suspect]
     Active Substance: MONTELUKAST SODIUM
     Indication: Asthma
     Dosage: 1 EVERY 1 DAYS
     Route: 048
  2. GLYCOPYRROLATE\INDACATEROL MALEATE [Suspect]
     Active Substance: GLYCOPYRROLATE\INDACATEROL MALEATE
     Indication: Asthma
     Dosage: 1 EVERY 1 DAYS, INHALATION
  3. ALVESCO [Concomitant]
     Active Substance: CICLESONIDE
     Indication: Asthma
     Dosage: 2 EVERY 1 DAYS, AEROSOL, METERED DOSE, INHALATION
  4. OLODATEROL\TIOTROPIUM [Concomitant]
     Active Substance: OLODATEROL\TIOTROPIUM
     Indication: Asthma
     Dosage: 1 EVERY 1 DAYS, INHALATION
  5. PREDNISONE [Concomitant]
     Active Substance: PREDNISONE
     Indication: Product used for unknown indication
     Dosage: 1 EVERY 1 DAYS
     Route: 048
  6. ALBUTEROL SULFATE [Concomitant]
     Active Substance: ALBUTEROL SULFATE
     Indication: Asthma
     Dosage: 4 EVERY 1 DAYS, INHALATION
  7. SULFATRIM [Concomitant]
     Active Substance: SULFAMETHOXAZOLE\TRIMETHOPRIM
     Indication: Product used for unknown indication
     Dosage: 1 EVERY 1 DAYS
     Route: 048

REACTIONS (13)
  - Anxiety [Fatal]
  - Arrhythmia [Fatal]
  - Arteriosclerosis [Fatal]
  - Bronchial disorder [Fatal]
  - Cough [Fatal]
  - Drug ineffective [Fatal]
  - Dyspnoea [Fatal]
  - General physical health deterioration [Fatal]
  - Insomnia [Fatal]
  - Mycotic allergy [Fatal]
  - Nasal congestion [Fatal]
  - Rhinorrhoea [Fatal]
  - Wheezing [Fatal]
